FAERS Safety Report 19015082 (Version 1)
Quarter: 2021Q1

REPORT INFORMATION
  Report Type: Spontaneous
  Country: IN (occurrence: IN)
  Receive Date: 20210317
  Receipt Date: 20210317
  Transmission Date: 20210420
  Serious: Yes (Other)
  Sender: FDA-Public Use
  Company Number: IN-SUN PHARMACEUTICAL INDUSTRIES LTD-2021R1-284540

PATIENT
  Age: 67 Year
  Sex: Female

DRUGS (2)
  1. LETROZOLE. [Suspect]
     Active Substance: LETROZOLE
     Indication: BREAST CANCER
     Dosage: 2.5 MILLIGRAM, OD
     Route: 065
  2. PALBOCICLIB [Suspect]
     Active Substance: PALBOCICLIB
     Indication: BREAST CANCER
     Dosage: 125 MG, 21 BY 28 DAY CYCLE
     Route: 065

REACTIONS (3)
  - Neutropenia [Unknown]
  - Disease progression [Recovered/Resolved]
  - Therapeutic response decreased [Unknown]
